FAERS Safety Report 19976240 (Version 1)
Quarter: 2021Q4

REPORT INFORMATION
  Report Type: Spontaneous
  Country: GB (occurrence: GB)
  Receive Date: 20211020
  Receipt Date: 20211020
  Transmission Date: 20220303
  Serious: Yes (Hospitalization, Other)
  Sender: FDA-Public Use
  Company Number: GB-PFIZER INC-202101337854

PATIENT
  Age: 5 Year
  Sex: Female

DRUGS (1)
  1. GENOTROPIN [Suspect]
     Active Substance: SOMATROPIN
     Indication: Turner^s syndrome
     Dosage: 0.8 MG, 1X/DAY

REACTIONS (6)
  - COVID-19 [Unknown]
  - Pyelocaliectasis [Unknown]
  - Hydronephrosis [Unknown]
  - Urinary tract infection [Unknown]
  - Headache [Unknown]
  - Urine odour abnormal [Unknown]
